FAERS Safety Report 24455618 (Version 2)
Quarter: 2024Q4

REPORT INFORMATION
  Report Type: Report from Study
  Country: US (occurrence: US)
  Receive Date: 20241017
  Receipt Date: 20241018
  Transmission Date: 20250114
  Serious: No
  Sender: ROCHE
  Company Number: US-ROCHE-3497586

PATIENT
  Age: 45 Year
  Sex: Male

DRUGS (3)
  1. RITUXAN [Suspect]
     Active Substance: RITUXIMAB
     Indication: Multiple sclerosis
     Route: 065
  2. TECFIDERA [Concomitant]
     Active Substance: DIMETHYL FUMARATE
  3. TYSABRI [Concomitant]
     Active Substance: NATALIZUMAB

REACTIONS (4)
  - CSF test abnormal [Unknown]
  - JC polyomavirus test positive [Unknown]
  - White matter lesion [Unknown]
  - Memory impairment [Unknown]

NARRATIVE: CASE EVENT DATE: 20181217
